FAERS Safety Report 19627887 (Version 3)
Quarter: 2022Q2

REPORT INFORMATION
  Report Type: Spontaneous
  Country: US (occurrence: US)
  Receive Date: 20210728
  Receipt Date: 20220427
  Transmission Date: 20220721
  Serious: No
  Sender: FDA-Public Use
  Company Number: US-KARYOPHARM-2021KPT000944

PATIENT

DRUGS (21)
  1. XPOVIO [Suspect]
     Active Substance: SELINEXOR
     Indication: Amyloidosis
     Dosage: 100 MG, WEEKLY
     Route: 048
     Dates: start: 20210707
  2. XPOVIO [Suspect]
     Active Substance: SELINEXOR
     Dosage: 60 MG, ON DAYS 1, 8, AND 15 ON A 28-DAY CYCLE
     Route: 048
  3. AMBIEN [Concomitant]
     Active Substance: ZOLPIDEM TARTRATE
  4. CREON [Concomitant]
     Active Substance: PANCRELIPASE AMYLASE\PANCRELIPASE LIPASE\PANCRELIPASE PROTEASE
  5. OMEPRAZOLE [Concomitant]
     Active Substance: OMEPRAZOLE
  6. VALTREX [Concomitant]
     Active Substance: VALACYCLOVIR HYDROCHLORIDE
  7. ZOLOFT [Concomitant]
     Active Substance: SERTRALINE HYDROCHLORIDE
  8. ALPRAZOLAM [Concomitant]
     Active Substance: ALPRAZOLAM
  9. SANCUSO [Concomitant]
     Active Substance: GRANISETRON
  10. ONDANSETRON [Concomitant]
     Active Substance: ONDANSETRON
  11. METRONIDAZOLE [Concomitant]
     Active Substance: METRONIDAZOLE
  12. LEVOTHYROXINE [Concomitant]
     Active Substance: LEVOTHYROXINE
  13. GAMMAGARD [Concomitant]
     Active Substance: HUMAN IMMUNOGLOBULIN G
  14. GABAPENTIN [Concomitant]
     Active Substance: GABAPENTIN
  15. FLUCONAZOLE [Concomitant]
     Active Substance: FLUCONAZOLE
  16. CLINDAMYCIN PHOSPHATE [Concomitant]
     Active Substance: CLINDAMYCIN PHOSPHATE
  17. AMITIZA [Concomitant]
     Active Substance: LUBIPROSTONE
  18. DEXAMETHASONE [Concomitant]
     Active Substance: DEXAMETHASONE
  19. DARZALEX [Concomitant]
     Active Substance: DARATUMUMAB
  20. LINZESS [Concomitant]
     Active Substance: LINACLOTIDE
  21. WELLBUTRIN [Concomitant]
     Active Substance: BUPROPION HYDROCHLORIDE

REACTIONS (9)
  - Urinary incontinence [Not Recovered/Not Resolved]
  - Blood glucose increased [Unknown]
  - Dysphonia [Unknown]
  - Vertigo [Unknown]
  - Visual impairment [Unknown]
  - Confusional state [Unknown]
  - Fatigue [Unknown]
  - Nausea [Unknown]
  - Off label use [Unknown]

NARRATIVE: CASE EVENT DATE: 20210707
